FAERS Safety Report 13247356 (Version 1)
Quarter: 2017Q1

REPORT INFORMATION
  Report Type: Spontaneous
  Country: US (occurrence: US)
  Receive Date: 20170217
  Receipt Date: 20170217
  Transmission Date: 20170428
  Serious: Yes (Other)
  Sender: FDA-Public Use
  Company Number: US-ASTRAZENECA-2017SE17180

PATIENT
  Age: 24955 Day
  Sex: Female

DRUGS (6)
  1. ASA [Concomitant]
     Active Substance: ASPIRIN
  2. LISINOPRIL. [Suspect]
     Active Substance: LISINOPRIL
     Route: 048
     Dates: start: 20170110
  3. BRILINTA [Suspect]
     Active Substance: TICAGRELOR
     Indication: STENT PLACEMENT
     Route: 048
     Dates: start: 20170111
  4. CITALOPRAM [Concomitant]
     Active Substance: CITALOPRAM HYDROBROMIDE
  5. TOPROL XL [Suspect]
     Active Substance: METOPROLOL SUCCINATE
     Route: 048
     Dates: end: 20170110
  6. APORVASTATIN [Concomitant]

REACTIONS (8)
  - Myocardial infarction [Unknown]
  - Epistaxis [Unknown]
  - Memory impairment [Unknown]
  - Fatigue [Unknown]
  - Dark circles under eyes [Unknown]
  - Cataract [Unknown]
  - Visual acuity reduced [Unknown]
  - Intentional product misuse [Unknown]

NARRATIVE: CASE EVENT DATE: 20170110
